FAERS Safety Report 5166732-5 (Version None)
Quarter: 2006Q4

REPORT INFORMATION
  Report Type: 
  Country: None (occurrence: None)
  Receive Date: 20061207
  Receipt Date: 20061130
  Transmission Date: 20070319
  Serious: Yes (Life-Threatening, Hospitalization, Other)
  Sender: FDA-Public Use
  Company Number: US-BRISTOL-MYERS SQUIBB COMPANY-13596820

PATIENT
  Age: 31 Year
  Sex: Male
  Weight: 60 kg

DRUGS (8)
  1. EFAVIRENZ [Suspect]
     Indication: HIV INFECTION
     Route: 048
     Dates: start: 20060517, end: 20061027
  2. EMTRICITABINE [Suspect]
     Indication: HIV INFECTION
     Route: 048
     Dates: start: 20060517, end: 20061022
  3. TENOFOVIR DISOPROXIL FUMARATE [Suspect]
     Indication: HIV INFECTION
     Route: 048
     Dates: start: 20060517, end: 20061027
  4. COTRIM D.S. [Concomitant]
  5. ISONIAZID [Concomitant]
     Dates: start: 20061018
  6. RIFAMPICIN [Concomitant]
     Dates: start: 20061018
  7. PYRAZINAMIDE [Concomitant]
     Dates: start: 20061018
  8. ETHAMBUTOL HYDROCHLORIDE [Concomitant]
     Dates: start: 20061018

REACTIONS (6)
  - ALANINE AMINOTRANSFERASE INCREASED [None]
  - ANAEMIA [None]
  - ASPARTATE AMINOTRANSFERASE INCREASED [None]
  - BLOOD ALKALINE PHOSPHATASE INCREASED [None]
  - HEPATIC ENCEPHALOPATHY [None]
  - PNEUMONIA [None]
